FAERS Safety Report 13131928 (Version 3)
Quarter: 2017Q3

REPORT INFORMATION
  Report Type: Spontaneous
  Country: US (occurrence: US)
  Receive Date: 20170119
  Receipt Date: 20170716
  Transmission Date: 20171127
  Serious: No
  Sender: FDA-Public Use
  Company Number: US-009507513-1701USA007994

PATIENT
  Age: 20 Year
  Sex: Female
  Weight: 113.83 kg

DRUGS (2)
  1. NEXPLANON [Suspect]
     Active Substance: ETONOGESTREL
     Dosage: UNK
     Route: 059
     Dates: start: 20170214
  2. NEXPLANON [Suspect]
     Active Substance: ETONOGESTREL
     Indication: CONTRACEPTION
     Dosage: 1 ROD/3 YEARS IN LEFT ARM
     Route: 059
     Dates: start: 20161228, end: 20161228

REACTIONS (5)
  - Product quality issue [Unknown]
  - No adverse event [Unknown]
  - Drug dispensing error [Unknown]
  - Complication of device insertion [Unknown]
  - Skin injury [Recovered/Resolved]

NARRATIVE: CASE EVENT DATE: 20161228
